FAERS Safety Report 8052533-7 (Version None)
Quarter: 2012Q1

REPORT INFORMATION
  Report Type: 
  Country: None (occurrence: None)
  Receive Date: 20120117
  Receipt Date: 20120117
  Transmission Date: 20120608
  Serious: Yes (Life-Threatening, Hospitalization)
  Sender: FDA-Public Use
  Company Number: None

PATIENT
  Age: 54 Year
  Sex: Male
  Weight: 80 kg

DRUGS (2)
  1. CELECOXIB [Suspect]
     Indication: PAIN
  2. CELECOXIB [Suspect]
     Indication: PAIN

REACTIONS (1)
  - ANAPHYLACTIC REACTION [None]
